FAERS Safety Report 5123553-7 (Version None)
Quarter: 2006Q3

REPORT INFORMATION
  Report Type: 
  Country: None (occurrence: None)
  Receive Date: 20060801
  Receipt Date: 20051012
  Transmission Date: 20061208
  Serious: Yes (Other)
  Sender: FDA-Public Use
  Company Number: 2005142120

PATIENT
  Age: 47 Year
  Sex: Male

DRUGS (3)
  1. IRINOTECAN HCL [Suspect]
     Indication: COLON CANCER
     Dates: start: 20050301
  2. LEUCOVORIN ACID (FOLINIC ACID) [Concomitant]
  3. FLUOROURACIL [Concomitant]

REACTIONS (4)
  - CARCINOEMBRYONIC ANTIGEN INCREASED [None]
  - DRUG INEFFECTIVE [None]
  - THROMBOSIS [None]
  - WEIGHT INCREASED [None]
